FAERS Safety Report 23803869 (Version 1)
Quarter: 2024Q2

REPORT INFORMATION
  Report Type: Spontaneous
  Country: US (occurrence: None)
  Receive Date: 20240430
  Receipt Date: 20240430
  Transmission Date: 20240716
  Serious: Yes (Disabling, Other)
  Sender: FDA-Public Use
  Company Number: None

PATIENT
  Age: 44 Year
  Sex: Female
  Weight: 71.55 kg

DRUGS (1)
  1. SUGAMMADEX [Suspect]
     Active Substance: SUGAMMADEX
     Indication: Postoperative care
     Dates: start: 20240412, end: 20240412

REACTIONS (9)
  - Breast swelling [None]
  - Breast pain [None]
  - Abdominal pain [None]
  - Bladder pain [None]
  - Uterine pain [None]
  - Mood swings [None]
  - Insomnia [None]
  - Crying [None]
  - Nausea [None]

NARRATIVE: CASE EVENT DATE: 20240412
